FAERS Safety Report 6528957-3 (Version None)
Quarter: 2010Q1

REPORT INFORMATION
  Report Type: 
  Country: None (occurrence: None)
  Receive Date: 20100106
  Receipt Date: 20100105
  Transmission Date: 20100710
  Serious: Yes (Hospitalization)
  Sender: FDA-Public Use
  Company Number: DE-MERCK-1001DEU00005

PATIENT
  Age: 77 Year
  Sex: Female

DRUGS (2)
  1. ZOCOR [Suspect]
     Indication: HYPERLIPIDAEMIA
     Route: 048
     Dates: start: 20091101, end: 20091201
  2. BENSERAZIDE HYDROCHLORIDE AND LEVODOPA [Suspect]
     Indication: RESTLESS LEGS SYNDROME
     Route: 048
     Dates: start: 20090501, end: 20091201

REACTIONS (2)
  - MONOPARESIS [None]
  - RHABDOMYOLYSIS [None]
